FAERS Safety Report 11437772 (Version 1)
Quarter: 2015Q3

REPORT INFORMATION
  Report Type: Report from Study
  Country: US (occurrence: US)
  Receive Date: 20150831
  Receipt Date: 20150831
  Transmission Date: 20151125
  Serious: No
  Sender: FDA-Public Use
  Company Number: US-CELGENEUS-USA-2015081341

PATIENT

DRUGS (1)
  1. REVLIMID [Suspect]
     Active Substance: LENALIDOMIDE
     Indication: LIGHT CHAIN DISEASE
     Route: 048

REACTIONS (5)
  - Fatigue [Unknown]
  - Constipation [Unknown]
  - Neuropathy peripheral [Unknown]
  - Nausea [Unknown]
  - Adverse drug reaction [Unknown]
